FAERS Safety Report 18804441 (Version 1)
Quarter: 2021Q1

REPORT INFORMATION
  Report Type: Spontaneous
  Country: US (occurrence: US)
  Receive Date: 20210129
  Receipt Date: 20210129
  Transmission Date: 20210419
  Serious: No
  Sender: FDA-Public Use
  Company Number: US-UCBSA-2020026259

PATIENT
  Age: 4 Day
  Sex: Male

DRUGS (10)
  1. LEVETIRACETAM. [Suspect]
     Active Substance: LEVETIRACETAM
     Indication: EPILEPSY
     Dosage: UNK
  2. CEFTAZIDIME. [Concomitant]
     Active Substance: CEFTAZIDIME
     Indication: PRODUCT USED FOR UNKNOWN INDICATION
     Dosage: UNK
  3. CALCIUM [Concomitant]
     Active Substance: CALCIUM
     Indication: PRODUCT USED FOR UNKNOWN INDICATION
     Dosage: UNK
  4. ARGININE [Concomitant]
     Active Substance: ARGININE
     Indication: ARGININOSUCCINATE SYNTHETASE DEFICIENCY
     Dosage: UNK
     Route: 042
  5. AMPICILLIN [Concomitant]
     Active Substance: AMPICILLIN
     Indication: PRODUCT USED FOR UNKNOWN INDICATION
     Dosage: UNK
  6. DEXTROSE. [Concomitant]
     Active Substance: DEXTROSE
     Indication: ARGININOSUCCINATE SYNTHETASE DEFICIENCY
     Dosage: UNK
     Route: 042
  7. SODIUM BENZOATE [Concomitant]
     Active Substance: SODIUM BENZOATE
     Indication: ARGININOSUCCINATE SYNTHETASE DEFICIENCY
     Dosage: UNK
     Route: 042
  8. ACYCLOVIR [ACICLOVIR] [Concomitant]
     Active Substance: ACYCLOVIR
     Indication: PRODUCT USED FOR UNKNOWN INDICATION
     Dosage: UNK
  9. GLUCOSE [Concomitant]
     Active Substance: DEXTROSE
     Indication: PRODUCT USED FOR UNKNOWN INDICATION
     Dosage: UNK
  10. SODIUM PHENYLACETATE [Concomitant]
     Active Substance: SODIUM PHENYLACETATE
     Indication: ARGININOSUCCINATE SYNTHETASE DEFICIENCY
     Dosage: UNK
     Route: 042

REACTIONS (1)
  - No adverse event [Unknown]
